FAERS Safety Report 7720813-8 (Version None)
Quarter: 2011Q3

REPORT INFORMATION
  Report Type: 
  Country: None (occurrence: None)
  Receive Date: 20110830
  Receipt Date: 20110830
  Transmission Date: 20111222
  Serious: Yes (Hospitalization)
  Sender: FDA-Public Use
  Company Number: None

PATIENT
  Sex: Female
  Weight: 131.9967 kg

DRUGS (1)
  1. METFORMIN HCL [Suspect]
     Indication: DIABETES MELLITUS
     Dosage: 1,000MG 2X DAILY

REACTIONS (4)
  - DIARRHOEA [None]
  - VOMITING [None]
  - HEPATIC ENZYME INCREASED [None]
  - MUSCLE SPASMS [None]
